FAERS Safety Report 13022957 (Version 2)
Quarter: 2016Q4

REPORT INFORMATION
  Report Type: Spontaneous
  Country: US (occurrence: US)
  Receive Date: 20161213
  Receipt Date: 20161222
  Transmission Date: 20170207
  Serious: Yes (Other)
  Sender: FDA-Public Use
  Company Number: US-GLAXOSMITHKLINE-US2016GSK183925

PATIENT
  Age: 39 Year
  Sex: Male
  Weight: 89.8 kg

DRUGS (11)
  1. XENAZINE [Suspect]
     Active Substance: TETRABENAZINE
     Dosage: 25 MG, TID
     Route: 048
     Dates: start: 20161202
  2. CITALOPRAM [Concomitant]
     Active Substance: CITALOPRAM HYDROBROMIDE
     Indication: ANXIETY
     Dosage: UNK
     Route: 048
  3. BUPROPION. [Suspect]
     Active Substance: BUPROPION
     Indication: DEPRESSION
     Dosage: 2 DF, 1D
     Route: 048
  4. MARINOL [Concomitant]
     Active Substance: DRONABINOL
     Indication: MULTIPLE SCLEROSIS
  5. VITAMIN C [Concomitant]
     Active Substance: ASCORBIC ACID
     Indication: VITAMIN SUPPLEMENTATION
     Dosage: UNK
     Route: 048
  6. XENAZINE [Suspect]
     Active Substance: TETRABENAZINE
     Indication: HUNTINGTON^S DISEASE
     Dosage: UNK
     Route: 048
     Dates: start: 2013, end: 201604
  7. VITAMIN E [Concomitant]
     Active Substance: .ALPHA.-TOCOPHEROL
     Indication: VITAMIN SUPPLEMENTATION
     Route: 048
  8. VITAMIN D CAPSULES (ERGOCALCIFEROL) [Concomitant]
     Indication: VITAMIN SUPPLEMENTATION
     Dosage: UNK
     Route: 048
  9. TETRABENAZINE. [Suspect]
     Active Substance: TETRABENAZINE
     Indication: HUNTINGTON^S DISEASE
     Dosage: UNK MG, UNK
     Route: 048
     Dates: start: 201604, end: 201611
  10. XANAX [Concomitant]
     Active Substance: ALPRAZOLAM
     Indication: ANXIETY
     Dosage: UNK
     Route: 048
     Dates: start: 2014
  11. MARINOL [Concomitant]
     Active Substance: DRONABINOL
     Indication: HUNTINGTON^S DISEASE
     Dosage: UNK
     Route: 048

REACTIONS (5)
  - Abasia [Unknown]
  - Agitation [Recovered/Resolved]
  - Fall [Recovered/Resolved]
  - Drug dose omission [Unknown]
  - Adverse event [Unknown]

NARRATIVE: CASE EVENT DATE: 201604
